FAERS Safety Report 17167658 (Version 1)
Quarter: 2019Q4

REPORT INFORMATION
  Report Type: Spontaneous
  Country: SE (occurrence: SE)
  Receive Date: 20191218
  Receipt Date: 20191218
  Transmission Date: 20200122
  Serious: Yes (Disabling)
  Sender: FDA-Public Use
  Company Number: SE-AUROBINDO-AUR-APL-2019-105059

PATIENT
  Sex: Male
  Weight: 55 kg

DRUGS (2)
  1. TRAMADOL. [Suspect]
     Active Substance: TRAMADOL
     Indication: PARALYSIS
     Dosage: 100 MILLIGRAM, ONCE A DAY
     Route: 065
     Dates: start: 20050822
  2. LYRICA [Suspect]
     Active Substance: PREGABALIN
     Indication: PARALYSIS
     Dosage: 100 MILLIGRAM, ONCE A DAY
     Route: 065
     Dates: start: 20050822

REACTIONS (4)
  - Anxiety [Not Recovered/Not Resolved]
  - Tic [Not Recovered/Not Resolved]
  - Abdominal pain [Not Recovered/Not Resolved]
  - Headache [Not Recovered/Not Resolved]
